FAERS Safety Report 4454608-8 (Version None)
Quarter: 2004Q3

REPORT INFORMATION
  Report Type: 
  Country: None (occurrence: None)
  Receive Date: 20040826
  Receipt Date: 20040701
  Transmission Date: 20050211
  Serious: No
  Sender: FDA-Public Use
  Company Number: WAES 0407USA00199

PATIENT
  Age: 57 Year
  Sex: Male

DRUGS (7)
  1. ZETIA [Suspect]
     Indication: HYPERCHOLESTEROLAEMIA
     Dosage: 10 MG/DAILY/PO
     Route: 048
     Dates: start: 20040605
  2. PRINIVIL [Concomitant]
  3. ALLOPURINOL [Concomitant]
  4. ASCORBIC ACID [Concomitant]
  5. ASPIRIN [Concomitant]
  6. CALCIUM [Concomitant]
  7. CHONDROITIN SULFATE SODIUM (+) [Concomitant]

REACTIONS (2)
  - MUSCLE CRAMP [None]
  - MYALGIA [None]
